FAERS Safety Report 14558169 (Version 1)
Quarter: 2018Q1

REPORT INFORMATION
  Report Type: Spontaneous
  Country: US (occurrence: US)
  Receive Date: 20180221
  Receipt Date: 20180221
  Transmission Date: 20180509
  Serious: No
  Sender: FDA-Public Use
  Company Number: US-PERRIGO-17US002301

PATIENT
  Age: 58 Year
  Sex: Female
  Weight: 55.78 kg

DRUGS (3)
  1. PROTONIX [Concomitant]
     Active Substance: PANTOPRAZOLE SODIUM
     Indication: GASTRIC DISORDER
     Dosage: UNKNOWN, UNKNOWN
     Route: 048
     Dates: start: 2014
  2. PEPCID [Concomitant]
     Active Substance: FAMOTIDINE
     Indication: GASTRIC DISORDER
     Dosage: UNKNOWN, UNKNOWN
     Route: 048
     Dates: start: 2014
  3. LOPERAMIDE HYDROCHLORIDE. [Suspect]
     Active Substance: LOPERAMIDE HYDROCHLORIDE
     Indication: DIARRHOEA
     Dosage: 6 MG TO 16 MG, QD
     Route: 048
     Dates: start: 20140702

REACTIONS (2)
  - Intentional product use issue [Not Recovered/Not Resolved]
  - Incorrect drug administration duration [Not Recovered/Not Resolved]

NARRATIVE: CASE EVENT DATE: 20140702
